FAERS Safety Report 8004726-2 (Version None)
Quarter: 2011Q4

REPORT INFORMATION
  Report Type: 
  Country: None (occurrence: None)
  Receive Date: 20111223
  Receipt Date: 20111213
  Transmission Date: 20120403
  Serious: Yes (Death, Other)
  Sender: FDA-Public Use
  Company Number: JP-JNJFOC-20111003390

PATIENT
  Sex: Male

DRUGS (63)
  1. ISONIAZID [Suspect]
     Indication: PULMONARY TUBERCULOSIS
     Dosage: AFTER BREAKFAST
     Route: 065
     Dates: start: 20100529
  2. PYRAZINAMIDE [Suspect]
     Route: 065
     Dates: start: 20100722, end: 20100918
  3. PYRAZINAMIDE [Suspect]
     Dosage: AFTER LUNCH
     Route: 065
     Dates: start: 20100529
  4. RIFADIN [Suspect]
     Route: 065
  5. GASCON [Concomitant]
     Route: 065
  6. LASIX [Concomitant]
     Route: 042
  7. SEISHOKU [Concomitant]
     Route: 042
  8. ALBUMIN (HUMAN) [Concomitant]
     Route: 041
  9. LIPITOR [Concomitant]
     Route: 065
  10. PURSENNID [Concomitant]
     Indication: CONSTIPATION
     Route: 065
  11. HEPARIN NA LOCK [Concomitant]
     Route: 042
  12. LEVOFLOXACIN [Suspect]
     Indication: PULMONARY TUBERCULOSIS
     Dosage: AFTER BREAKFAST
     Route: 048
  13. ISONIAZID [Suspect]
     Indication: DISSEMINATED TUBERCULOSIS
     Dosage: AFTER BREAKFAST
     Route: 065
     Dates: start: 20100529
  14. ISONIAZID [Suspect]
     Dosage: AFTER BREAKFAST
     Route: 065
  15. ETHAMBUTOL HYDROCHLORIDE [Suspect]
     Route: 030
     Dates: end: 20100616
  16. LEVOTHYROXINE SODIUM [Concomitant]
     Route: 065
  17. NEOLAMIN 3B [Concomitant]
     Route: 041
  18. PYRAZINAMIDE [Suspect]
     Indication: PULMONARY TUBERCULOSIS
     Route: 065
     Dates: start: 20100722, end: 20100918
  19. ETHAMBUTOL HYDROCHLORIDE [Suspect]
     Indication: PULMONARY TUBERCULOSIS
     Route: 030
     Dates: end: 20100616
  20. ETHAMBUTOL HYDROCHLORIDE [Suspect]
     Route: 030
  21. SEISHOKU [Concomitant]
     Route: 030
  22. POTASSIUM CHLORIDE [Concomitant]
     Route: 050
  23. VANCOMYCIN HYCHLORIDE [Concomitant]
     Route: 041
  24. STREPTOMYCIN SULFATE [Suspect]
     Indication: PULMONARY TUBERCULOSIS
     Route: 030
  25. URSO 250 [Concomitant]
     Route: 065
  26. KAYTWO [Concomitant]
     Route: 065
  27. LASIX [Concomitant]
     Route: 041
  28. SEISHOKU [Concomitant]
     Route: 041
  29. HANP [Concomitant]
     Route: 041
  30. PYRAZINAMIDE [Suspect]
     Route: 065
     Dates: start: 20100713, end: 20110717
  31. RIFADIN [Suspect]
     Indication: DISSEMINATED TUBERCULOSIS
     Route: 065
  32. ENALAPRIL MALEATE [Suspect]
     Indication: PRODUCT USED FOR UNKNOWN INDICATION
     Dosage: AFTER BREAKFAST
     Route: 065
  33. ALDACTONE [Concomitant]
     Route: 065
  34. GANATON [Concomitant]
     Route: 065
  35. HICALIQ [Concomitant]
     Route: 041
  36. ELEMENMIC [Concomitant]
     Route: 041
  37. DISTILLED WATER [Concomitant]
     Route: 041
  38. PANTOL (PANTHENOL) [Concomitant]
     Route: 041
  39. SOLU-CORTEF [Concomitant]
     Route: 042
  40. PYRAZINAMIDE [Suspect]
     Indication: DISSEMINATED TUBERCULOSIS
     Dosage: AFTER LUNCH
     Route: 065
  41. RIFADIN [Suspect]
     Indication: PULMONARY TUBERCULOSIS
     Route: 065
     Dates: start: 20100529
  42. EPINASTINE HYDROCHLORIDE [Suspect]
     Indication: PRODUCT USED FOR UNKNOWN INDICATION
     Dosage: 1 DF BEFORE BEDTIME
     Route: 065
  43. LASIX [Concomitant]
     Route: 065
  44. DEXTROSE [Concomitant]
     Route: 042
  45. LEVOFLOXACIN [Suspect]
     Indication: DISSEMINATED TUBERCULOSIS
     Dosage: AFTER BREAKFAST
     Route: 048
  46. ISONIAZID [Suspect]
     Dosage: AFTER BREAKFAST
     Route: 065
  47. PYRAZINAMIDE [Suspect]
     Route: 065
     Dates: start: 20100713, end: 20110717
  48. RIFADIN [Suspect]
     Route: 065
     Dates: start: 20100529
  49. ETHAMBUTOL HYDROCHLORIDE [Suspect]
     Indication: EXTRAPULMONARY TUBERCULOSIS
     Route: 030
  50. STREPTOMYCIN SULFATE [Suspect]
     Indication: EXTRAPULMONARY TUBERCULOSIS
     Route: 030
  51. CORTRIL [Concomitant]
     Route: 065
  52. SEISHOKU [Concomitant]
     Route: 041
  53. SEISHOKU [Concomitant]
     Route: 041
  54. GRAN [Concomitant]
     Route: 058
  55. MAGNESIUM OXIDE [Concomitant]
     Route: 065
  56. TPN ELECTROLYTES IN PLASTIC CONTAINER [Concomitant]
     Route: 041
  57. PYRAZINAMIDE [Suspect]
     Dosage: AFTER LUNCH
     Route: 065
  58. PYRAZINAMIDE [Suspect]
     Dosage: AFTER LUNCH
     Route: 065
     Dates: start: 20100529
  59. FAMOTIDINE [Suspect]
     Indication: PRODUCT USED FOR UNKNOWN INDICATION
     Dosage: AFTER DINNER
     Route: 065
  60. ALL OTHER THERAPEUTIC DRUGS [Concomitant]
     Route: 041
  61. TIENAM [Concomitant]
     Route: 041
  62. ENSURE [Concomitant]
     Route: 065
  63. PREDNISOLONE [Concomitant]
     Dosage: 3.5 DF
     Route: 065

REACTIONS (6)
  - HYPOGLYCAEMIA [None]
  - PNEUMONIA ASPIRATION [None]
  - DRUG ERUPTION [None]
  - CANDIDA PNEUMONIA [None]
  - APLASTIC ANAEMIA [None]
  - LIVER DISORDER [None]
